FAERS Safety Report 8346488-5 (Version None)
Quarter: 2012Q2

REPORT INFORMATION
  Report Type: 
  Country: None (occurrence: None)
  Receive Date: 20120507
  Receipt Date: 20120507
  Transmission Date: 20120825
  Serious: Yes (Life-Threatening, Hospitalization, Disabling)
  Sender: FDA-Public Use
  Company Number: None

PATIENT
  Sex: Male

DRUGS (2)
  1. PEGASYS [Suspect]
     Dosage: 180MCG Q WEEK SQ
     Route: 058
     Dates: start: 20120206, end: 20120407
  2. RIBAVIRIN [Concomitant]

REACTIONS (2)
  - COMA [None]
  - SEPSIS [None]
